FAERS Safety Report 22691011 (Version 3)
Quarter: 2024Q1

REPORT INFORMATION
  Report Type: Report from Study
  Country: US (occurrence: US)
  Receive Date: 20230711
  Receipt Date: 20240215
  Transmission Date: 20240410
  Serious: No
  Sender: FDA-Public Use
  Company Number: US-002147023-NVSC2023US153139

PATIENT
  Sex: Female
  Weight: 96.16 kg

DRUGS (2)
  1. COSENTYX [Suspect]
     Active Substance: SECUKINUMAB
     Indication: Psoriasis
     Dosage: UNK (COSENTYX FOR OVER 2 YEARS)
     Route: 065
  2. CLOBETASOL [Concomitant]
     Active Substance: CLOBETASOL
     Indication: Psoriasis
     Dosage: UNK
     Route: 065

REACTIONS (16)
  - Psoriasis [Unknown]
  - Erythema [Unknown]
  - Skin irritation [Unknown]
  - Rash erythematous [Unknown]
  - Pruritus [Unknown]
  - Skin exfoliation [Unknown]
  - Skin plaque [Unknown]
  - Intertrigo [Unknown]
  - Accident [Unknown]
  - Carpal tunnel syndrome [Unknown]
  - Back pain [Unknown]
  - Therapeutic product effect incomplete [Unknown]
  - Rosacea [Recovering/Resolving]
  - Pustule [Recovering/Resolving]
  - Lentigo [Unknown]
  - Seborrhoeic keratosis [Unknown]
